FAERS Safety Report 7261835-3 (Version None)
Quarter: 2011Q1

REPORT INFORMATION
  Report Type: 
  Country: None (occurrence: None)
  Receive Date: 20110130
  Receipt Date: 20101227
  Transmission Date: 20110831
  Serious: No
  Sender: FDA-Public Use
  Company Number: US-ABBOTT-10P-163-0690861-00

PATIENT
  Sex: Male
  Weight: 68.1 kg

DRUGS (8)
  1. HUMIRA [Suspect]
     Indication: ANKYLOSING SPONDYLITIS
     Dates: start: 20060101, end: 20101114
  2. ZITHROMAX [Suspect]
     Indication: SINUSITIS
  3. MULTIVITAMIN [Concomitant]
     Indication: PRODUCT USED FOR UNKNOWN INDICATION
     Dosage: DAILY
  4. ZIAC [Concomitant]
     Indication: BLOOD PRESSURE ABNORMAL
     Dosage: IN THE MORNING
  5. AMITRIPTYLINE HCL [Concomitant]
     Indication: INSOMNIA
     Dosage: AT NIGHT
  6. CELEBREX [Concomitant]
     Indication: ANKYLOSING SPONDYLITIS
  7. LISINOPRIL [Concomitant]
     Indication: BLOOD PRESSURE ABNORMAL
     Dosage: IN THE EVENING
  8. AMOXICILLIN [Suspect]
     Indication: SINUSITIS
     Dosage: 2-3 TIMES DAILY

REACTIONS (12)
  - COUGH [None]
  - WEIGHT INCREASED [None]
  - DRUG INEFFECTIVE [None]
  - OROPHARYNGEAL PAIN [None]
  - DIARRHOEA [None]
  - DYSPHONIA [None]
  - GASTROINTESTINAL BACTERIAL INFECTION [None]
  - VOMITING [None]
  - SINUSITIS [None]
  - BLOODY DISCHARGE [None]
  - RHINORRHOEA [None]
  - WEIGHT DECREASED [None]
